APPROVED DRUG PRODUCT: TERLIVAZ
Active Ingredient: TERLIPRESSIN ACETATE
Strength: EQ 0.85MG BASE/VIAL
Dosage Form/Route: POWDER;INTRAVENOUS
Application: N022231 | Product #001
Applicant: MALLINCKRODT PHARMACEUTICALS IRELAND LTD
Approved: Sep 14, 2022 | RLD: Yes | RS: Yes | Type: RX

PATENTS:
Patent 10335452 | Expires: Apr 5, 2037

EXCLUSIVITY:
Code: NCE | Date: Sep 14, 2027
Code: ODE-406 | Date: Sep 14, 2029